FAERS Safety Report 6099480-8 (Version None)
Quarter: 2009Q1

REPORT INFORMATION
  Report Type: 
  Country: None (occurrence: None)
  Receive Date: 20090303
  Receipt Date: 20090219
  Transmission Date: 20090719
  Serious: Yes (Hospitalization)
  Sender: FDA-Public Use
  Company Number: US-WYE-H08190409

PATIENT
  Age: 30 Year
  Sex: Female
  Weight: 96 kg

DRUGS (3)
  1. MYLOTARG [Suspect]
     Indication: ACUTE MYELOID LEUKAEMIA
     Dosage: 11.94MG/DAY; TOTAL DOSE ADMINISTERED THIS COURSE=11.94MG
     Dates: end: 20090202
  2. DAUNORUBICIN HCL [Suspect]
     Indication: ACUTE MYELOID LEUKAEMIA
     Dosage: 90MG/DAY; TOTAL DOSE ADMINISTERED THIS COURSE=90MG
     Dates: end: 20090201
  3. CYTARABINE [Suspect]
     Indication: ACUTE MYELOID LEUKAEMIA
     Dosage: 199MG/DAY; TOTAL DOSE ADMINISTERED THIS COURSE=199MG
     Dates: end: 20090206

REACTIONS (1)
  - HYPERCHOLESTEROLAEMIA [None]
